FAERS Safety Report 5978435-5 (Version None)
Quarter: 2008Q4

REPORT INFORMATION
  Report Type: 
  Country: None (occurrence: None)
  Receive Date: 20081204
  Receipt Date: 20081126
  Transmission Date: 20090506
  Serious: Yes (Other)
  Sender: FDA-Public Use
  Company Number: US-ASTRAZENECA-2008UW26568

PATIENT
  Sex: Female

DRUGS (7)
  1. LISINOPRIL [Suspect]
     Route: 048
  2. LUCENTIS [Concomitant]
  3. LASIX [Concomitant]
  4. POTASSIUM CHLORIDE [Concomitant]
  5. NORVASC [Concomitant]
  6. LIPITOR [Concomitant]
  7. EXJADE [Concomitant]

REACTIONS (4)
  - DIARRHOEA [None]
  - EYE PRURITUS [None]
  - HEADACHE [None]
  - MACULAR DEGENERATION [None]
